FAERS Safety Report 9808249 (Version 1)
Quarter: 2014Q1

REPORT INFORMATION
  Report Type: Spontaneous
  Country: DE (occurrence: DE)
  Receive Date: 20140110
  Receipt Date: 20140110
  Transmission Date: 20141002
  Serious: Yes (Other)
  Sender: FDA-Public Use
  Company Number: DE-TEVA-454673GER

PATIENT
  Age: 65 Year
  Sex: Female

DRUGS (4)
  1. NITROFURANTOIN-RATIOPHARM 100 MG RETARDKAPSELN [Suspect]
     Indication: CYSTITIS NONINFECTIVE
     Dosage: 100 MILLIGRAM DAILY;
     Route: 048
     Dates: start: 201311
  2. STALEVO [Concomitant]
     Indication: PARKINSON^S DISEASE
  3. SIFROL RET [Concomitant]
     Indication: PARKINSON^S DISEASE
  4. AZILECT [Concomitant]
     Indication: PARKINSON^S DISEASE

REACTIONS (6)
  - Circulatory collapse [Unknown]
  - Angina pectoris [Unknown]
  - Dizziness [Unknown]
  - Tremor [Unknown]
  - Feeling abnormal [Unknown]
  - Gait disturbance [Unknown]
